FAERS Safety Report 8026174-1 (Version None)
Quarter: 2012Q1

REPORT INFORMATION
  Report Type: 
  Country: None (occurrence: None)
  Receive Date: 20120105
  Receipt Date: 20110131
  Transmission Date: 20120608
  Serious: No
  Sender: FDA-Public Use
  Company Number: US-ABBOTT-11P-163-0702716-00

PATIENT
  Sex: Female
  Weight: 52.21 kg

DRUGS (3)
  1. SYNTHROID [Suspect]
  2. SYNTHROID [Suspect]
     Indication: PRODUCT USED FOR UNKNOWN INDICATION
     Dosage: ALTERNATES EVERY OTHER DAY W/75 MCG
     Dates: start: 20070101
  3. SYNTHROID [Suspect]
     Indication: PRODUCT USED FOR UNKNOWN INDICATION
     Dosage: ALTERNATES EVERY OTHER DAY W/50 MCG
     Dates: start: 20101201

REACTIONS (6)
  - LABORATORY TEST ABNORMAL [None]
  - PAIN [None]
  - WEIGHT INCREASED [None]
  - FATIGUE [None]
  - ASTHENIA [None]
  - HYPOGLYCAEMIA [None]
